FAERS Safety Report 4264635-1 (Version None)
Quarter: 2004Q1

REPORT INFORMATION
  Report Type: 
  Country: None (occurrence: None)
  Receive Date: 20040105
  Receipt Date: 20031218
  Transmission Date: 20041129
  Serious: Yes (Life-Threatening, Hospitalization)
  Sender: FDA-Public Use
  Company Number: 200322887GDDC

PATIENT
  Age: 69 Year
  Sex: Male

DRUGS (3)
  1. GLYBURIDE [Suspect]
     Dosage: QD PO
     Route: 048
     Dates: start: 20030915, end: 20031022
  2. METFORMIN HCL [Suspect]
     Dosage: QD PO
     Route: 048
     Dates: start: 20030915, end: 20031022
  3. GLUCOBAY [Suspect]
     Dosage: QD PO
     Route: 048
     Dates: start: 20030915, end: 20031022

REACTIONS (2)
  - COAGULOPATHY [None]
  - HEPATITIS [None]
